FAERS Safety Report 7748328-1 (Version None)
Quarter: 2011Q3

REPORT INFORMATION
  Report Type: 
  Country: None (occurrence: None)
  Receive Date: 20110913
  Receipt Date: 20110901
  Transmission Date: 20111222
  Serious: Yes (Other)
  Sender: FDA-Public Use
  Company Number: PHEH2011US03668

PATIENT
  Sex: Female

DRUGS (1)
  1. GILENYA [Suspect]
     Route: 048

REACTIONS (5)
  - MACULAR OEDEMA [None]
  - OPTIC NEURITIS [None]
  - READING DISORDER [None]
  - ATAXIA [None]
  - OPHTHALMOPLEGIA [None]
